FAERS Safety Report 25755354 (Version 1)
Quarter: 2025Q3

REPORT INFORMATION
  Report Type: Spontaneous
  Country: CN (occurrence: CN)
  Receive Date: 20250903
  Receipt Date: 20250903
  Transmission Date: 20251021
  Serious: Yes (Hospitalization)
  Sender: AMGEN
  Company Number: CN-AMGEN-CHNSP2025171846

PATIENT
  Age: 60 Year
  Sex: Male
  Weight: 65 kg

DRUGS (3)
  1. CARFILZOMIB [Suspect]
     Active Substance: CARFILZOMIB
     Indication: Plasma cell myeloma
     Dosage: 34.4 MILLIGRAM, QD
     Route: 040
     Dates: start: 20250810, end: 20250811
  2. DEXAMETHASONE SODIUM PHOSPHATE [Concomitant]
     Active Substance: DEXAMETHASONE SODIUM PHOSPHATE
     Indication: Plasma cell myeloma
     Dosage: 10 MILLIGRAM, QD
     Route: 040
     Dates: start: 20250810, end: 20250811
  3. LENALIDOMIDE [Concomitant]
     Active Substance: LENALIDOMIDE
     Indication: Plasma cell myeloma
     Dosage: 25 MILLIGRAM, QD
     Route: 048
     Dates: start: 20250810, end: 20250823

REACTIONS (3)
  - Rash pruritic [Recovered/Resolved]
  - Hypokalaemia [Recovered/Resolved]
  - Myalgia [Recovered/Resolved]

NARRATIVE: CASE EVENT DATE: 20250814
